FAERS Safety Report 15680482 (Version 1)
Quarter: 2018Q4

REPORT INFORMATION
  Report Type: Spontaneous
  Country: US (occurrence: US)
  Receive Date: 20181203
  Receipt Date: 20181203
  Transmission Date: 20190205
  Serious: No
  Sender: FDA-Public Use
  Company Number: US-JNJFOC-20181112717

PATIENT
  Age: 65 Year
  Sex: Male
  Weight: 58.97 kg

DRUGS (7)
  1. XANAX [Concomitant]
     Active Substance: ALPRAZOLAM
     Dosage: IN THE EVENING
     Route: 065
  2. ERLEADA [Suspect]
     Active Substance: APALUTAMIDE
     Indication: PROSTATE CANCER
     Route: 048
     Dates: start: 20180814, end: 20181111
  3. LEXAPRO [Concomitant]
     Active Substance: ESCITALOPRAM OXALATE
     Route: 065
  4. TRAZODONE [Concomitant]
     Active Substance: TRAZODONE HYDROCHLORIDE
     Dosage: IN THE EVENING
     Route: 065
  5. ZYTIGA [Suspect]
     Active Substance: ABIRATERONE ACETATE
     Indication: PROSTATE CANCER
     Route: 048
     Dates: start: 20180102, end: 20180813
  6. LISINOPRIL. [Concomitant]
     Active Substance: LISINOPRIL
     Indication: BLOOD PRESSURE MEASUREMENT
     Route: 065
  7. VITAMIN D2 [Concomitant]
     Active Substance: ERGOCALCIFEROL
     Dosage: 50,000 UNITS
     Route: 065

REACTIONS (2)
  - Plicated tongue [Not Recovered/Not Resolved]
  - Tongue discomfort [Not Recovered/Not Resolved]

NARRATIVE: CASE EVENT DATE: 20181020
